FAERS Safety Report 7939017-9 (Version None)
Quarter: 2011Q4

REPORT INFORMATION
  Report Type: 
  Country: None (occurrence: None)
  Receive Date: 20111124
  Receipt Date: 20111122
  Transmission Date: 20120403
  Serious: Yes (Other)
  Sender: FDA-Public Use
  Company Number: JP-PFIZER INC-2011286988

PATIENT
  Age: 44 Year
  Sex: Male

DRUGS (1)
  1. VARENICLINE TARTRATE [Suspect]
     Dosage: 2 MG/DAY
     Route: 048
     Dates: start: 20111108, end: 20111117

REACTIONS (3)
  - IRRITABILITY [None]
  - ABNORMAL BEHAVIOUR [None]
  - MENTAL DISORDER [None]
